FAERS Safety Report 13977870 (Version 1)
Quarter: 2017Q3

REPORT INFORMATION
  Report Type: Spontaneous
  Country: US (occurrence: US)
  Receive Date: 20170915
  Receipt Date: 20170915
  Transmission Date: 20171128
  Serious: Yes (Other)
  Sender: FDA-Public Use
  Company Number: US-ELI_LILLY_AND_COMPANY-US201709001684

PATIENT
  Sex: Male

DRUGS (2)
  1. AXIRON [Suspect]
     Active Substance: TESTOSTERONE
     Indication: ANDROGEN REPLACEMENT THERAPY
     Dosage: UNK UNK, UNKNOWN
     Route: 061
     Dates: start: 201002, end: 201702
  2. ANDROGEL [Suspect]
     Active Substance: TESTOSTERONE
     Indication: ANDROGEN REPLACEMENT THERAPY
     Dosage: UNK UNK, UNKNOWN
     Route: 061
     Dates: start: 201002, end: 201702

REACTIONS (2)
  - Pulmonary embolism [Unknown]
  - Deep vein thrombosis [Unknown]

NARRATIVE: CASE EVENT DATE: 20170201
